FAERS Safety Report 5737762-7 (Version None)
Quarter: 2008Q2

REPORT INFORMATION
  Report Type: 
  Country: None (occurrence: None)
  Receive Date: 20080514
  Receipt Date: 20080502
  Transmission Date: 20081010
  Serious: Yes (Hospitalization, Other)
  Sender: FDA-Public Use
  Company Number: JP-AVENTIS-200810011JP

PATIENT
  Sex: Female

DRUGS (5)
  1. LANTUS [Suspect]
     Indication: DIABETES MELLITUS
     Dosage: DOSE: 4 UNITS
     Route: 058
     Dates: start: 20071203
  2. OPTICLIK (INSULIN INJECTION PEN) [Suspect]
     Indication: DIABETES MELLITUS
  3. NOVORAPID [Concomitant]
     Indication: DIABETES MELLITUS
     Dosage: DOSE: 38 UNITS/DAY
  4. NOVORAPID [Concomitant]
     Dosage: DOSE: 16+12+12 UNITS/DAY
  5. NOVORAPID [Concomitant]
     Dosage: DOSE: 36 UNITS/DAY[12-12-12-0]
     Route: 058

REACTIONS (5)
  - HYPOAESTHESIA [None]
  - HYPOGLYCAEMIA [None]
  - PAIN IN EXTREMITY [None]
  - RETINAL HAEMORRHAGE [None]
  - WEIGHT DECREASED [None]
